FAERS Safety Report 13287898 (Version 1)
Quarter: 2017Q1

REPORT INFORMATION
  Report Type: Spontaneous
  Country: US (occurrence: US)
  Receive Date: 20170302
  Receipt Date: 20170302
  Transmission Date: 20170428
  Serious: Yes (Death)
  Sender: FDA-Public Use
  Company Number: US-PFIZER INC-2017091862

PATIENT
  Age: 83 Year
  Sex: Male
  Weight: 64 kg

DRUGS (1)
  1. LYRICA [Suspect]
     Active Substance: PREGABALIN
     Indication: DIABETIC FOOT
     Dosage: 25 MG, 1X/DAY
     Route: 048
     Dates: end: 20170131

REACTIONS (1)
  - Myocardial infarction [Fatal]
